FAERS Safety Report 7781772-5 (Version None)
Quarter: 2011Q3

REPORT INFORMATION
  Report Type: 
  Country: None (occurrence: None)
  Receive Date: 20110927
  Receipt Date: 20110921
  Transmission Date: 20111222
  Serious: Yes (Hospitalization)
  Sender: FDA-Public Use
  Company Number: US-GLAXOSMITHKLINE-A0945228A

PATIENT
  Age: 50 Year
  Sex: Male
  Weight: 220.5 kg

DRUGS (1)
  1. AVANDIA [Suspect]
     Indication: DIABETES MELLITUS
     Dosage: 4MG TWICE PER DAY
     Dates: end: 20080701

REACTIONS (5)
  - LUNG DISORDER [None]
  - CARDIAC FAILURE CONGESTIVE [None]
  - NEUROPATHY PERIPHERAL [None]
  - CELLULITIS [None]
  - PAIN IN EXTREMITY [None]
